FAERS Safety Report 16458810 (Version 1)
Quarter: 2019Q2

REPORT INFORMATION
  Report Type: Spontaneous
  Country: US (occurrence: US)
  Receive Date: 20190620
  Receipt Date: 20190620
  Transmission Date: 20190711
  Serious: No
  Sender: FDA-Public Use
  Company Number: US-THERAPEUTICSMD-2019TMD00826

PATIENT
  Age: 79 Year
  Sex: Female
  Weight: 73.47 kg

DRUGS (13)
  1. GLIPIZIDE. [Concomitant]
     Active Substance: GLIPIZIDE
  2. FOLIC ACID. [Concomitant]
     Active Substance: FOLIC ACID
  3. CLOPIDOGREL [Concomitant]
     Active Substance: CLOPIDOGREL BISULFATE
  4. AMLODIPINE BESYLATE. [Concomitant]
     Active Substance: AMLODIPINE BESYLATE
  5. VITAMIN B3 [Concomitant]
     Active Substance: NIACIN
  6. IMVEXXY [Suspect]
     Active Substance: ESTRADIOL
     Indication: URINARY INCONTINENCE
     Dosage: 10 ?G, 1X/WEEK AT NIGHT
     Route: 067
     Dates: start: 201903, end: 201904
  7. ^THYROXINE^ [Concomitant]
  8. ATORVASTATIN [Concomitant]
     Active Substance: ATORVASTATIN
  9. FERRO SEQUELS [Concomitant]
  10. PANTOPRAZOLE [Concomitant]
     Active Substance: PANTOPRAZOLE
  11. ^EMBLE^ (PRESUMED ENBREL) [Concomitant]
     Dosage: UNK, 1X/WEEK
  12. IRBESARTAN. [Concomitant]
     Active Substance: IRBESARTAN
  13. ASPIRIN. [Concomitant]
     Active Substance: ASPIRIN

REACTIONS (2)
  - Off label use [Recovered/Resolved]
  - Urinary tract infection [Recovered/Resolved]

NARRATIVE: CASE EVENT DATE: 201903
